FAERS Safety Report 7086333-1 (Version None)
Quarter: 2010Q4

REPORT INFORMATION
  Report Type: 
  Country: None (occurrence: None)
  Receive Date: 20101105
  Receipt Date: 20101025
  Transmission Date: 20110411
  Serious: Yes (Other)
  Sender: FDA-Public Use
  Company Number: GB-MYLANLABS-2010S1017024

PATIENT
  Age: 79 Year
  Sex: Male
  Weight: 78 kg

DRUGS (5)
  1. GABAPENTIN [Suspect]
     Indication: POST HERPETIC NEURALGIA
     Dates: start: 20080820, end: 20100616
  2. AXSAIN [Concomitant]
     Indication: POST HERPETIC NEURALGIA
  3. AMLODIPINE [Concomitant]
     Indication: HYPERTENSION
     Route: 048
  4. BISOPROLOL [Concomitant]
     Indication: CARDIAC DISORDER
     Route: 048
     Dates: start: 20090101
  5. TENORETIC 100 [Concomitant]
     Indication: INSOMNIA

REACTIONS (1)
  - DRUG WITHDRAWAL SYNDROME [None]
